FAERS Safety Report 8488156-5 (Version None)
Quarter: 2012Q3

REPORT INFORMATION
  Report Type: 
  Country: None (occurrence: None)
  Receive Date: 20120705
  Receipt Date: 20120625
  Transmission Date: 20120928
  Serious: Yes (Hospitalization)
  Sender: FDA-Public Use
  Company Number: FR-PFIZER INC-2011291692

PATIENT
  Age: 64 Year
  Sex: Male

DRUGS (2)
  1. AXITINIB [Suspect]
     Indication: NEOPLASM
     Dosage: 6 MG  DAILY
     Dates: start: 20110913, end: 20111109
  2. EVEROLIMUS [Suspect]
     Indication: NEOPLASM
     Dosage: 5 MG, 1X/DAY
     Dates: start: 20110920, end: 20111110

REACTIONS (1)
  - SINUSITIS [None]
